FAERS Safety Report 8589230-5 (Version None)
Quarter: 2012Q3

REPORT INFORMATION
  Report Type: 
  Country: None (occurrence: None)
  Receive Date: 20120731
  Receipt Date: 20120712
  Transmission Date: 20120928
  Serious: Yes (Other)
  Sender: FDA-Public Use
  Company Number: JP-2012-15822

PATIENT
  Sex: Female

DRUGS (1)
  1. PLETAL [Suspect]
     Dosage: ORAL
     Route: 048
     Dates: end: 20120614

REACTIONS (2)
  - OPHTHALMOPLEGIA [None]
  - DIPLOPIA [None]
